FAERS Safety Report 16950890 (Version 1)
Quarter: 2019Q4

REPORT INFORMATION
  Report Type: Spontaneous
  Country: US (occurrence: US)
  Receive Date: 20191022
  Receipt Date: 20191022
  Transmission Date: 20200122
  Serious: Yes (Disabling)
  Sender: FDA-Public Use
  Company Number: None

PATIENT
  Age: 51 Year
  Sex: Female
  Weight: 74.25 kg

DRUGS (13)
  1. SCOPOLAMINE TRANSDERMAL PATCH [Suspect]
     Active Substance: SCOPOLAMINE
     Indication: PROPHYLAXIS OF NAUSEA AND VOMITING
     Dates: start: 20190905, end: 20190907
  2. CALCIUM [Concomitant]
     Active Substance: CALCIUM
  3. ASTAXANTHIN [Concomitant]
     Active Substance: ASTAXANTHIN
  4. TUMERIC [Concomitant]
     Active Substance: HERBALS\TURMERIC
  5. 81MG ASPIRIN [Concomitant]
  6. BIOTIN [Concomitant]
     Active Substance: BIOTIN
  7. L-LYSINE [Concomitant]
     Active Substance: LYSINE
  8. ASHWAGANDHA [Concomitant]
     Active Substance: HERBALS
  9. MILK THISTLE [Concomitant]
     Active Substance: DIETARY SUPPLEMENT\HERBALS\MILK THISTLE
  10. SPIRONOLACTONE. [Concomitant]
     Active Substance: SPIRONOLACTONE
  11. OMEGA 3 [Concomitant]
     Active Substance: OMEGA-3 FATTY ACIDS
  12. MAGNESIUM [Concomitant]
     Active Substance: MAGNESIUM
  13. RHODIOLA [Concomitant]
     Active Substance: HERBALS

REACTIONS (6)
  - Dizziness [None]
  - Vertigo [None]
  - Nausea [None]
  - Impaired work ability [None]
  - Vestibular disorder [None]
  - Impaired driving ability [None]

NARRATIVE: CASE EVENT DATE: 20190908
